FAERS Safety Report 18198248 (Version 2)
Quarter: 2020Q3

REPORT INFORMATION
  Report Type: Spontaneous
  Country: US (occurrence: US)
  Receive Date: 20200826
  Receipt Date: 20200910
  Transmission Date: 20201103
  Serious: Yes (Hospitalization, Other)
  Sender: FDA-Public Use
  Company Number: US-INTRA-CELLULAR THERAPIES, INC.-2020ICT00067

PATIENT
  Age: 75 Year
  Sex: Male
  Weight: 68.03 kg

DRUGS (9)
  1. CAPLYTA [Suspect]
     Active Substance: LUMATEPERONE
     Indication: PARKINSONISM
  2. SEROQUEL [Concomitant]
     Active Substance: QUETIAPINE FUMARATE
  3. DEPAKOTE ER [Concomitant]
     Active Substance: DIVALPROEX SODIUM
  4. CAPLYTA [Suspect]
     Active Substance: LUMATEPERONE
     Indication: HALLUCINATION
     Dosage: 42 MG, 1X/DAY
     Route: 048
     Dates: start: 202006, end: 20200808
  5. CAPLYTA [Suspect]
     Active Substance: LUMATEPERONE
     Indication: BIPOLAR DISORDER
  6. DEPLIN [Concomitant]
     Active Substance: LEVOMEFOLATE CALCIUM
  7. SINEMET [Concomitant]
     Active Substance: CARBIDOPA\LEVODOPA
  8. UNSPECIFIED ^D3^ MEDICATION [Concomitant]
  9. NAMENDA [Concomitant]
     Active Substance: MEMANTINE HYDROCHLORIDE

REACTIONS (21)
  - Asthenia [Recovering/Resolving]
  - Posture abnormal [Recovering/Resolving]
  - Oxygen saturation decreased [Unknown]
  - Dehydration [Unknown]
  - Muscle disorder [Recovering/Resolving]
  - Eye movement disorder [Unknown]
  - Feeling abnormal [Recovering/Resolving]
  - Neuralgia [Recovered/Resolved]
  - Mydriasis [Unknown]
  - Weight decreased [Unknown]
  - Product use in unapproved indication [Recovered/Resolved]
  - Reduced facial expression [Unknown]
  - Glassy eyes [Unknown]
  - Decreased appetite [Recovered/Resolved]
  - Hypotension [Unknown]
  - Tongue movement disturbance [Unknown]
  - Pneumonia [Recovered/Resolved]
  - Oral disorder [Unknown]
  - Abdominal pain upper [Recovered/Resolved]
  - Anaemia [Unknown]
  - Food refusal [Recovered/Resolved]

NARRATIVE: CASE EVENT DATE: 202006
